FAERS Safety Report 17282235 (Version 1)
Quarter: 2020Q1

REPORT INFORMATION
  Report Type: Spontaneous
  Country: US (occurrence: US)
  Receive Date: 20191230
  Receipt Date: 20191230
  Transmission Date: 20200409
  Serious: Yes (Other)
  Sender: FDA-Public Use
  Company Number: None

PATIENT
  Age: 58 Year
  Sex: Female

DRUGS (1)
  1. MYCOPHENOLATE [Suspect]
     Active Substance: MYCOPHENOLIC ACID
     Indication: CROHN^S DISEASE
     Route: 048
     Dates: start: 20190702

REACTIONS (4)
  - Vomiting [None]
  - Nausea [None]
  - Gastroenteritis norovirus [None]
  - Pyrexia [None]

NARRATIVE: CASE EVENT DATE: 201912
